FAERS Safety Report 8984682 (Version 3)
Quarter: 2015Q3

REPORT INFORMATION
  Report Type: Spontaneous
  Country: US (occurrence: US)
  Receive Date: 20121226
  Receipt Date: 20150828
  Transmission Date: 20151125
  Serious: Yes (Life-Threatening, Hospitalization, Other)
  Sender: FDA-Public Use
  Company Number: US-BAYER-2012-132930

PATIENT
  Age: 19 Year
  Sex: Female
  Weight: 109 kg

DRUGS (12)
  1. YASMIN [Suspect]
     Active Substance: DROSPIRENONE\ETHINYL ESTRADIOL
     Indication: POLYCYSTIC OVARIES
     Dosage: UNK
     Dates: start: 20120127, end: 20120517
  2. FLUTICASONE [Concomitant]
     Active Substance: FLUTICASONE\FLUTICASONE PROPIONATE
     Dosage: UNK UNK, PRN
     Dates: start: 20120503
  3. CYCLOBENZAPRINE [Concomitant]
     Active Substance: CYCLOBENZAPRINE
     Dosage: 10 MG,EVERY EVENING AS NEEDED
     Dates: start: 20120509
  4. SAFYRAL [Suspect]
     Active Substance: DROSPIRENONE\ETHINYL ESTRADIOL\LEVOMEFOLATE CALCIUM
     Indication: POLYCYSTIC OVARIES
     Dosage: UNK
     Dates: start: 20120127, end: 20120517
  5. MELOXICAM. [Concomitant]
     Active Substance: MELOXICAM
  6. MINOCYCLINE [Concomitant]
     Active Substance: MINOCYCLINE\MINOCYCLINE HYDROCHLORIDE
  7. SYNTHROID [Concomitant]
     Active Substance: LEVOTHYROXINE SODIUM
     Dosage: UNK
     Dates: start: 20120509
  8. TYLENOL WITH CODEINE [Concomitant]
     Active Substance: ACETAMINOPHEN\CODEINE PHOSPHATE
     Indication: PAIN
  9. ADVIL [Concomitant]
     Active Substance: IBUPROFEN
  10. CALCIUM [Concomitant]
     Active Substance: CALCIUM
     Dosage: UNK
     Dates: start: 20120509
  11. MORPHINE [Concomitant]
     Active Substance: MORPHINE
     Indication: PAIN
  12. CIPRO [Concomitant]
     Active Substance: CIPROFLOXACIN HYDROCHLORIDE

REACTIONS (12)
  - Emotional distress [None]
  - Iliac vein occlusion [None]
  - Inferior vena caval occlusion [None]
  - Phlebitis superficial [None]
  - Thrombophlebitis [Recovered/Resolved]
  - Thrombosis [None]
  - Pain in extremity [None]
  - Peripheral swelling [None]
  - Abasia [None]
  - Deep vein thrombosis [None]
  - Quality of life decreased [None]
  - Tenderness [None]

NARRATIVE: CASE EVENT DATE: 20120517
